FAERS Safety Report 17828095 (Version 1)
Quarter: 2020Q2

REPORT INFORMATION
  Report Type: Spontaneous
  Country: CA (occurrence: CA)
  Receive Date: 20200527
  Receipt Date: 20200527
  Transmission Date: 20200714
  Serious: Yes (Death, Hospitalization)
  Sender: FDA-Public Use
  Company Number: CA-ROCHE-2605112

PATIENT
  Age: 62 Year
  Sex: Female

DRUGS (8)
  1. HYDROMORPHONE [Concomitant]
     Active Substance: HYDROMORPHONE
  2. INSULIN LISPRO;INSULIN LISPRO PROTAMINE SUSPENSION [Concomitant]
  3. DICLOFENAC [Suspect]
     Active Substance: DICLOFENAC
     Indication: PRODUCT USED FOR UNKNOWN INDICATION
     Route: 065
  4. RAMIPRIL. [Concomitant]
     Active Substance: RAMIPRIL
  5. ACTEMRA [Suspect]
     Active Substance: TOCILIZUMAB
     Indication: RHEUMATOID ARTHRITIS
     Route: 042
  6. METHOTREXATE. [Suspect]
     Active Substance: METHOTREXATE
     Indication: PRODUCT USED FOR UNKNOWN INDICATION
     Route: 065
  7. ROSUVASTATIN CALCIUM. [Concomitant]
     Active Substance: ROSUVASTATIN CALCIUM
  8. INSULIN [Concomitant]
     Active Substance: INSULIN NOS
     Route: 065

REACTIONS (29)
  - Death [Fatal]
  - Ear infection [Fatal]
  - Drug ineffective [Fatal]
  - Pain in extremity [Fatal]
  - Pruritus [Fatal]
  - Therapeutic product effect decreased [Fatal]
  - Hepatic steatosis [Fatal]
  - Liver disorder [Fatal]
  - Pharyngitis [Fatal]
  - Swelling [Fatal]
  - Bronchitis [Fatal]
  - Musculoskeletal stiffness [Fatal]
  - Rheumatoid arthritis [Fatal]
  - Joint swelling [Fatal]
  - Peripheral swelling [Fatal]
  - Poor venous access [Fatal]
  - Therapeutic response decreased [Fatal]
  - Hepatic enzyme increased [Fatal]
  - Nasopharyngitis [Fatal]
  - Seizure [Fatal]
  - Vomiting [Fatal]
  - Arthralgia [Fatal]
  - Gait disturbance [Fatal]
  - Loss of personal independence in daily activities [Fatal]
  - Dementia [Fatal]
  - Liver injury [Fatal]
  - Noninfective encephalitis [Fatal]
  - Oedema peripheral [Fatal]
  - Tremor [Fatal]
